FAERS Safety Report 20852740 (Version 3)
Quarter: 2022Q3

REPORT INFORMATION
  Report Type: Spontaneous
  Country: US (occurrence: US)
  Receive Date: 20220520
  Receipt Date: 20220718
  Transmission Date: 20221027
  Serious: No
  Sender: FDA-Public Use
  Company Number: US-ORGANON-O2205USA001487

PATIENT
  Age: 22 Year
  Sex: Female
  Weight: 82.54 kg

DRUGS (1)
  1. NEXPLANON [Suspect]
     Active Substance: ETONOGESTREL
     Dosage: 1 IMPLANT OF 68 MG, RIGHT ARM
     Route: 059
     Dates: start: 20170203

REACTIONS (6)
  - Weight increased [Unknown]
  - Complication of device removal [Not Recovered/Not Resolved]
  - Device placement issue [Not Recovered/Not Resolved]
  - Device issue [Not Recovered/Not Resolved]
  - Incorrect product administration duration [Unknown]
  - No adverse event [Unknown]

NARRATIVE: CASE EVENT DATE: 20200203
